FAERS Safety Report 7562459-0 (Version None)
Quarter: 2011Q2

REPORT INFORMATION
  Report Type: 
  Country: None (occurrence: None)
  Receive Date: 20110622
  Receipt Date: 20110620
  Transmission Date: 20111010
  Serious: Yes (Life-Threatening)
  Sender: FDA-Public Use
  Company Number: DE-SOLVAY-00310004042

PATIENT
  Age: 135 Day
  Sex: Male
  Weight: 4.35 kg

DRUGS (4)
  1. KREON FUER KINDER [Suspect]
     Indication: SURGERY
     Dosage: DAILY DOSE: 60 PELLETS, AS USED: 20 PELLETS, FREQUENCY: 3 TIMES A DAY, ROUTE: PER OS VIA TUBE
     Route: 065
     Dates: start: 20100618, end: 20100618
  2. PHENOBARBITAL TAB [Concomitant]
     Indication: SEDATION
     Dosage: DAILY DOSE: 20 MILLIGRAM(S); 3 TIMES A DAY
     Route: 042
     Dates: start: 20100501
  3. CEFOTAXIM [Concomitant]
     Indication: POST PROCEDURAL INFECTION
     Dosage: DAILY DOSE: 400 MILLIGRAM(S); 3 TIMES A DAY
     Route: 042
     Dates: start: 20100617
  4. OMEPRAZOLE [Concomitant]
     Indication: HYPERCHLORHYDRIA
     Dosage: DAILY DOSE: 2 MILLIGRAM(S)
     Route: 042
     Dates: start: 20100501, end: 20100619

REACTIONS (2)
  - HYPERSENSITIVITY [None]
  - GASTROINTESTINAL HAEMORRHAGE [None]
